FAERS Safety Report 21222153 (Version 2)
Quarter: 2022Q3

REPORT INFORMATION
  Report Type: Spontaneous
  Country: US (occurrence: US)
  Receive Date: 20220817
  Receipt Date: 20220827
  Transmission Date: 20221027
  Serious: Yes (Other)
  Sender: FDA-Public Use
  Company Number: US-AMGEN-USASP2022137469

PATIENT
  Age: 81 Year
  Sex: Male

DRUGS (1)
  1. PROLIA [Suspect]
     Active Substance: DENOSUMAB
     Indication: Bone loss
     Dosage: UNK
     Route: 065
     Dates: end: 20200423

REACTIONS (3)
  - Lumbar vertebral fracture [Recovering/Resolving]
  - Thoracic vertebral fracture [Recovering/Resolving]
  - Bone density abnormal [Unknown]

NARRATIVE: CASE EVENT DATE: 20210729
